FAERS Safety Report 15997918 (Version 2)
Quarter: 2021Q4

REPORT INFORMATION
  Report Type: Report from Study
  Country: US (occurrence: US)
  Receive Date: 20190222
  Receipt Date: 20211124
  Transmission Date: 20220303
  Serious: Yes (Other)
  Sender: FDA-Public Use
  Company Number: US-SHIRE-US201905881

PATIENT
  Age: 3 Year
  Sex: Female

DRUGS (2)
  1. HUMAN IMMUNOGLOBULIN G [Suspect]
     Active Substance: HUMAN IMMUNOGLOBULIN G
     Indication: Primary immunodeficiency syndrome
     Dosage: UNK
     Route: 042
  2. HUMAN IMMUNOGLOBULIN G [Suspect]
     Active Substance: HUMAN IMMUNOGLOBULIN G
     Dosage: 7.5 GRAM, MONTHLY
     Route: 042

REACTIONS (6)
  - Pharyngitis streptococcal [Unknown]
  - Meningitis aseptic [Unknown]
  - Headache [Unknown]
  - Poor venous access [Unknown]
  - Injury associated with device [Unknown]
  - Immunoglobulins decreased [Unknown]

NARRATIVE: CASE EVENT DATE: 20190201
